FAERS Safety Report 5404880-2 (Version None)
Quarter: 2007Q3

REPORT INFORMATION
  Report Type: 
  Country: None (occurrence: None)
  Receive Date: 20070803
  Receipt Date: 20070801
  Transmission Date: 20080115
  Serious: Yes (Other)
  Sender: FDA-Public Use
  Company Number: ZA-BAYER-200614989GDS

PATIENT
  Age: 29 Year
  Sex: Female
  Weight: 53 kg

DRUGS (7)
  1. AVELON [Suspect]
     Indication: UPPER RESPIRATORY TRACT INFECTION
     Route: 048
     Dates: start: 20060928, end: 20060101
  2. CLACID (CLARITHROMYCIN) [Suspect]
     Indication: UPPER RESPIRATORY TRACT INFECTION
     Route: 065
     Dates: start: 20061003
  3. PULMISON [Suspect]
     Indication: UPPER RESPIRATORY TRACT INFECTION
     Route: 065
     Dates: start: 20060928
  4. FLIXONASE [Suspect]
     Indication: UPPER RESPIRATORY TRACT INFECTION
     Route: 065
     Dates: start: 20061016, end: 20061019
  5. SYMBICORT [Concomitant]
     Indication: ASTHMA
     Dosage: TOTAL DAILY DOSE: 4 PUFF  UNIT DOSE: 2 PUFF
     Route: 065
  6. MOXIPEN [Concomitant]
     Indication: UPPER RESPIRATORY TRACT INFECTION
     Route: 065
     Dates: start: 20060916
  7. AMOXICILLIN + CLAVULANATE POTASSIUM [Concomitant]
     Indication: UPPER RESPIRATORY TRACT INFECTION
     Route: 065
     Dates: start: 20060921

REACTIONS (2)
  - DRUG EXPOSURE DURING PREGNANCY [None]
  - INTRA-UTERINE DEATH [None]
